FAERS Safety Report 6163469-0 (Version None)
Quarter: 2009Q2

REPORT INFORMATION
  Report Type: 
  Country: None (occurrence: None)
  Receive Date: 20090422
  Receipt Date: 20090416
  Transmission Date: 20091009
  Serious: Yes (Death)
  Sender: FDA-Public Use
  Company Number: US-AVENTIS-200913259US

PATIENT
  Sex: Male

DRUGS (1)
  1. LOVENOX [Suspect]
     Dosage: DOSE: UNK

REACTIONS (1)
  - DEATH [None]
